FAERS Safety Report 23908210 (Version 1)
Quarter: 2024Q2

REPORT INFORMATION
  Report Type: Spontaneous
  Country: US (occurrence: None)
  Receive Date: 20240524
  Receipt Date: 20240524
  Transmission Date: 20240716
  Serious: Yes (Hospitalization)
  Sender: FDA-Public Use
  Company Number: None

PATIENT
  Age: 24 Year
  Sex: Male
  Weight: 73.48 kg

DRUGS (6)
  1. CLOZAPINE [Suspect]
     Active Substance: CLOZAPINE
     Indication: Schizophrenia
     Dosage: 200 MG AT BEDTIME ORAL
     Route: 048
  2. Caffeine/Coffee [Concomitant]
  3. ABILIFY MAINTENA [Concomitant]
     Active Substance: ARIPIPRAZOLE
  4. OLANZAPINE [Concomitant]
     Active Substance: OLANZAPINE
  5. DIAZEPAM [Concomitant]
     Active Substance: DIAZEPAM
  6. LORAZEPAM [Concomitant]
     Active Substance: LORAZEPAM

REACTIONS (13)
  - Tremor [None]
  - Hyperhidrosis [None]
  - Dyspnoea [None]
  - Muscle tightness [None]
  - Haematemesis [None]
  - Hyporesponsive to stimuli [None]
  - Antipsychotic drug level increased [None]
  - Toxicity to various agents [None]
  - Lactic acidosis [None]
  - Blood creatine phosphokinase increased [None]
  - Blood creatinine increased [None]
  - Troponin increased [None]
  - Agitation [None]

NARRATIVE: CASE EVENT DATE: 20240519
